FAERS Safety Report 25186547 (Version 1)
Quarter: 2025Q2

REPORT INFORMATION
  Report Type: Report from Study
  Country: ES (occurrence: ES)
  Receive Date: 20250411
  Receipt Date: 20250411
  Transmission Date: 20250717
  Serious: Yes (Death)
  Sender: ABBVIE
  Company Number: ES-ABBVIE-6119551

PATIENT
  Age: 84 Year
  Sex: Male

DRUGS (1)
  1. FOSCARBIDOPA\FOSLEVODOPA [Suspect]
     Active Substance: FOSCARBIDOPA\FOSLEVODOPA
     Indication: Parkinson^s disease
     Route: 058
     Dates: start: 20241010

REACTIONS (6)
  - Micturition disorder [Fatal]
  - Hallucination, visual [Recovered/Resolved]
  - Respiratory tract infection [Recovered/Resolved]
  - Urinary tract infection [Recovering/Resolving]
  - Somnolence [Unknown]
  - Disorientation [Unknown]

NARRATIVE: CASE EVENT DATE: 20250101
